FAERS Safety Report 4707027-0 (Version None)
Quarter: 2005Q3

REPORT INFORMATION
  Report Type: 
  Country: None (occurrence: None)
  Receive Date: 20050701
  Receipt Date: 20050701
  Transmission Date: 20060218
  Serious: Yes (Other)
  Sender: FDA-Public Use
  Company Number: None

PATIENT
  Age: 43 Year
  Sex: Female
  Weight: 65.7716 kg

DRUGS (2)
  1. PAMPRIN TAB [Suspect]
     Indication: TENSION
     Dosage: TWO TWICE DAILY ORAL
     Route: 048
     Dates: start: 20010801, end: 20010901
  2. IBUPROFEN [Concomitant]

REACTIONS (1)
  - HYPOKALAEMIA [None]
